FAERS Safety Report 15451126 (Version 1)
Quarter: 2018Q3

REPORT INFORMATION
  Report Type: Spontaneous
  Country: US (occurrence: US)
  Receive Date: 20180927
  Receipt Date: 20180927
  Transmission Date: 20181010
  Serious: Yes (Other)
  Sender: FDA-Public Use
  Company Number: None

PATIENT
  Age: 68 Year
  Sex: Male
  Weight: 74.52 kg

DRUGS (10)
  1. PROPRANOLOL [Concomitant]
     Active Substance: PROPRANOLOL HYDROCHLORIDE
  2. BRAFTOVI [Suspect]
     Active Substance: ENCORAFENIB
     Indication: MALIGNANT MELANOMA
     Route: 048
     Dates: start: 20180802, end: 20180927
  3. SERTRALINE [Concomitant]
     Active Substance: SERTRALINE HYDROCHLORIDE
  4. VITAMIN D2 [Concomitant]
     Active Substance: ERGOCALCIFEROL
  5. TAMSULOSIN [Concomitant]
     Active Substance: TAMSULOSIN
  6. LISINOPRIL. [Concomitant]
     Active Substance: LISINOPRIL
  7. LORAZEPAM. [Concomitant]
     Active Substance: LORAZEPAM
  8. MEKTOVI [Suspect]
     Active Substance: BINIMETINIB
     Indication: MALIGNANT MELANOMA
     Route: 048
     Dates: start: 20180802, end: 20180927
  9. DUTASTERIDE. [Concomitant]
     Active Substance: DUTASTERIDE
  10. ATORVASTATIN [Concomitant]
     Active Substance: ATORVASTATIN

REACTIONS (1)
  - Pyrexia [None]

NARRATIVE: CASE EVENT DATE: 20180927
